FAERS Safety Report 5597606-3 (Version None)
Quarter: 2008Q1

REPORT INFORMATION
  Report Type: 
  Country: None (occurrence: None)
  Receive Date: 20080121
  Receipt Date: 20080109
  Transmission Date: 20080703
  Serious: Yes (Hospitalization)
  Sender: FDA-Public Use
  Company Number: B0504097A

PATIENT
  Sex: Female

DRUGS (2)
  1. ADARTREL [Suspect]
     Indication: RESTLESS LEGS SYNDROME
     Route: 048
  2. CLONAZEPAM [Concomitant]
     Indication: ESSENTIAL TREMOR

REACTIONS (7)
  - DIZZINESS [None]
  - FAECAL INCONTINENCE [None]
  - LOSS OF CONSCIOUSNESS [None]
  - NAUSEA [None]
  - POST-TRAUMATIC AMNESTIC DISORDER [None]
  - URINARY INCONTINENCE [None]
  - VOMITING [None]
